FAERS Safety Report 8514294-4 (Version None)
Quarter: 2012Q3

REPORT INFORMATION
  Report Type: 
  Country: None (occurrence: None)
  Receive Date: 20120717
  Receipt Date: 20110704
  Transmission Date: 20120928
  Serious: Yes (Hospitalization)
  Sender: FDA-Public Use
  Company Number: FR-SANOFI-AVENTIS-2011SA042148

PATIENT
  Age: 22 Year
  Sex: Female
  Weight: 87 kg

DRUGS (2)
  1. LOVENOX [Suspect]
     Indication: THROMBOSIS PROPHYLAXIS
     Route: 058
     Dates: start: 20110601, end: 20110601
  2. LOVENOX [Suspect]
     Route: 058
     Dates: start: 20110607, end: 20110704

REACTIONS (6)
  - VAGINAL INFECTION [None]
  - OVERDOSE [None]
  - INFECTION [None]
  - PRODUCT QUALITY ISSUE [None]
  - MATERNAL EXPOSURE DURING PREGNANCY [None]
  - UTERINE CONTRACTIONS DURING PREGNANCY [None]
